FAERS Safety Report 8799239 (Version 1)
Quarter: 2012Q4

REPORT INFORMATION
  Report Type: Spontaneous
  Country: BR (occurrence: None)
  Receive Date: 20120914
  Receipt Date: 20120914
  Transmission Date: 20130627
  Serious: Yes (Hospitalization)
  Sender: FDA-Public Use
  Company Number: ENTC2012-0408

PATIENT
  Age: 76 Year
  Sex: Male

DRUGS (5)
  1. STALEVO (LEVODOPA, CARBIDOPA, ENTACAPONE) [Suspect]
     Indication: PARKINSON^S DISEASE
  2. PROLOPA [Concomitant]
  3. KITAPEN [Concomitant]
  4. SEROQUEL [Concomitant]
  5. GEODON [Concomitant]

REACTIONS (14)
  - Hallucination [None]
  - Aggression [None]
  - Somnolence [None]
  - Immobile [None]
  - Speech disorder [None]
  - Eye movement disorder [None]
  - Masked facies [None]
  - Dysphagia [None]
  - Tracheal obstruction [None]
  - Laryngeal obstruction [None]
  - Pharyngeal disorder [None]
  - Productive cough [None]
  - Chest X-ray abnormal [None]
  - Disorientation [None]
